FAERS Safety Report 18287660 (Version 1)
Quarter: 2020Q3

REPORT INFORMATION
  Report Type: Spontaneous
  Country: US (occurrence: US)
  Receive Date: 20200921
  Receipt Date: 20200921
  Transmission Date: 20201103
  Serious: No
  Sender: FDA-Public Use
  Company Number: US-AMGEN-USASP2020150072

PATIENT
  Sex: Female

DRUGS (1)
  1. REPATHA [Suspect]
     Active Substance: EVOLOCUMAB
     Indication: DYSPNOEA
     Dosage: 140 MILLIGRAM, Q2WK
     Route: 058
     Dates: start: 20190624

REACTIONS (1)
  - Pruritus [Not Recovered/Not Resolved]
